FAERS Safety Report 11674591 (Version 2)
Quarter: 2016Q1

REPORT INFORMATION
  Report Type: Spontaneous
  Country: GB (occurrence: GB)
  Receive Date: 20151028
  Receipt Date: 20160108
  Transmission Date: 20160525
  Serious: Yes (Other)
  Sender: FDA-Public Use
  Company Number: GB-BAYER-2015-447405

PATIENT
  Age: 35 Year
  Sex: Female

DRUGS (1)
  1. MIRENA [Suspect]
     Active Substance: LEVONORGESTREL
     Dosage: 20 MCG/24HR, CONT
     Route: 015
     Dates: start: 20150310, end: 20151008

REACTIONS (21)
  - Malaise [Not Recovered/Not Resolved]
  - Dizziness [Recovering/Resolving]
  - Pallor [Recovering/Resolving]
  - Influenza like illness [Recovering/Resolving]
  - Muscle spasms [None]
  - Muscle spasms [Recovering/Resolving]
  - Eye swelling [Recovering/Resolving]
  - Blood pressure diastolic decreased [Recovering/Resolving]
  - Mental disorder [Recovering/Resolving]
  - Limb discomfort [None]
  - Hypotension [Recovering/Resolving]
  - Head discomfort [Recovering/Resolving]
  - Genital haemorrhage [Recovering/Resolving]
  - Post procedural haemorrhage [None]
  - Paraesthesia [Recovering/Resolving]
  - Nausea [Recovering/Resolving]
  - Impaired driving ability [Recovering/Resolving]
  - Dizziness [None]
  - Pain in extremity [Recovering/Resolving]
  - Hot flush [Recovering/Resolving]
  - Asthenia [Recovering/Resolving]

NARRATIVE: CASE EVENT DATE: 2015
